FAERS Safety Report 5522047-4 (Version None)
Quarter: 2007Q4

REPORT INFORMATION
  Report Type: 
  Country: None (occurrence: None)
  Receive Date: 20071120
  Receipt Date: 20071113
  Transmission Date: 20080405
  Serious: Yes (Death, Hospitalization, Other)
  Sender: FDA-Public Use
  Company Number: PHEH2007US14298

PATIENT
  Age: 61 Year
  Sex: Male

DRUGS (1)
  1. NEORAL [Suspect]
     Indication: RENAL TRANSPLANT
     Dosage: 75 MG, BID
     Route: 048
     Dates: start: 19920101, end: 20070110

REACTIONS (28)
  - ACUTE RESPIRATORY FAILURE [None]
  - ANAEMIA [None]
  - BLOOD CREATININE INCREASED [None]
  - BLOOD OSMOLARITY INCREASED [None]
  - CARDIAC ARREST [None]
  - CARDIAC FAILURE CONGESTIVE [None]
  - CHRONIC OBSTRUCTIVE PULMONARY DISEASE [None]
  - COMPLICATIONS OF TRANSPLANTED KIDNEY [None]
  - CONFUSIONAL STATE [None]
  - DEPRESSION [None]
  - DIABETES MELLITUS [None]
  - GOUT [None]
  - HAEMATURIA [None]
  - HEPATIC CIRRHOSIS [None]
  - HEPATITIS C [None]
  - HYPERNATRAEMIA [None]
  - HYPERTENSION [None]
  - MENTAL STATUS CHANGES [None]
  - METABOLIC ENCEPHALOPATHY [None]
  - PERICARDITIS [None]
  - PNEUMONIA [None]
  - PYELONEPHRITIS [None]
  - PYREXIA [None]
  - RENAL FAILURE ACUTE [None]
  - RENAL FAILURE CHRONIC [None]
  - SEPSIS [None]
  - URINARY RETENTION [None]
  - URINARY TRACT INFECTION [None]
